FAERS Safety Report 5695744-8 (Version None)
Quarter: 2008Q2

REPORT INFORMATION
  Report Type: 
  Country: None (occurrence: None)
  Receive Date: 20080407
  Receipt Date: 20080331
  Transmission Date: 20081010
  Serious: Yes (Hospitalization)
  Sender: FDA-Public Use
  Company Number: JP-ELI_LILLY_AND_COMPANY-JP200804000335

PATIENT
  Age: 80 Year
  Sex: Female
  Weight: 40 kg

DRUGS (1)
  1. GEMCITABINE HCL [Suspect]
     Indication: GALLBLADDER CANCER RECURRENT
     Dosage: 800 MG, OTHER
     Route: 042
     Dates: start: 20071115, end: 20071205

REACTIONS (1)
  - STRESS CARDIOMYOPATHY [None]
